FAERS Safety Report 5473535-0 (Version None)
Quarter: 2007Q4

REPORT INFORMATION
  Report Type: 
  Country: None (occurrence: None)
  Receive Date: 20071001
  Receipt Date: 20040130
  Transmission Date: 20080405
  Serious: Yes (Other)
  Sender: FDA-Public Use
  Company Number: US-PFIZER INC-2004193572US

PATIENT
  Sex: Male

DRUGS (7)
  1. CELEBREX [Suspect]
     Indication: ARTHRITIS
     Route: 048
     Dates: start: 20010101, end: 20010101
  2. DYAZIDE [Concomitant]
  3. PROCARDIA [Concomitant]
  4. ATIVAN [Concomitant]
  5. XALATAN [Concomitant]
  6. TIMOPTIC [Concomitant]
  7. ASPIRIN [Concomitant]

REACTIONS (2)
  - DIZZINESS [None]
  - HALLUCINATION, VISUAL [None]
